FAERS Safety Report 6073996-2 (Version None)
Quarter: 2009Q1

REPORT INFORMATION
  Report Type: 
  Country: None (occurrence: None)
  Receive Date: 20090209
  Receipt Date: 20090209
  Transmission Date: 20090719
  Serious: Yes (Other)
  Sender: FDA-Public Use
  Company Number: None

PATIENT
  Age: 47 Year
  Sex: Female
  Weight: 83.9154 kg

DRUGS (2)
  1. CYMBALTA [Suspect]
     Indication: FIBROMYALGIA
     Dosage: 60 MG DAILY INJ
     Dates: start: 20050101, end: 20080101
  2. CYMBALTA [Suspect]
     Dosage: 30 MG DAILY INJ

REACTIONS (6)
  - COORDINATION ABNORMAL [None]
  - DIZZINESS [None]
  - DRUG DOSE OMISSION [None]
  - FEAR [None]
  - PARAESTHESIA [None]
  - PRODUCT QUALITY ISSUE [None]
